FAERS Safety Report 19472143 (Version 1)
Quarter: 2021Q2

REPORT INFORMATION
  Report Type: Spontaneous
  Country: GB (occurrence: GB)
  Receive Date: 20210629
  Receipt Date: 20210629
  Transmission Date: 20210717
  Serious: Yes (Other)
  Sender: FDA-Public Use
  Company Number: GB-ACCORD-229792

PATIENT
  Age: 65 Year
  Sex: Male
  Weight: 64.41 kg

DRUGS (8)
  1. DUORESP SPIROMAX [Concomitant]
     Active Substance: BUDESONIDE\FORMOTEROL
  2. MONTELUKAST [Suspect]
     Active Substance: MONTELUKAST SODIUM
     Indication: ASTHMA
     Dosage: 10, AT NIGHT
     Route: 048
     Dates: start: 20210603, end: 20210613
  3. LORATADINE. [Concomitant]
     Active Substance: LORATADINE
  4. LACTULOSE. [Concomitant]
     Active Substance: LACTULOSE
  5. PREGABALIN MYLAN [Concomitant]
     Active Substance: PREGABALIN
  6. PROZAC [Concomitant]
     Active Substance: FLUOXETINE HYDROCHLORIDE
  7. LEVOTHYROXINE. [Concomitant]
     Active Substance: LEVOTHYROXINE
  8. SALBUTAMOL [Concomitant]
     Active Substance: ALBUTEROL

REACTIONS (7)
  - Agitation [Not Recovered/Not Resolved]
  - Fear [Unknown]
  - Muscle twitching [Not Recovered/Not Resolved]
  - Panic reaction [Not Recovered/Not Resolved]
  - Anxiety [Not Recovered/Not Resolved]
  - Suicidal ideation [Not Recovered/Not Resolved]
  - Tremor [Not Recovered/Not Resolved]

NARRATIVE: CASE EVENT DATE: 20210609
